FAERS Safety Report 18021978 (Version 4)
Quarter: 2020Q3

REPORT INFORMATION
  Report Type: Spontaneous
  Country: JP (occurrence: JP)
  Receive Date: 20200715
  Receipt Date: 20200825
  Transmission Date: 20201103
  Serious: Yes (Hospitalization, Other)
  Sender: FDA-Public Use
  Company Number: JP-009507513-2007JPN000995J

PATIENT
  Age: 63 Year
  Sex: Male

DRUGS (1)
  1. DESALEX TABLETS 5MG [Suspect]
     Active Substance: DESLORATADINE
     Indication: URTICARIA
     Dosage: 5 MILLIGRAM, QD
     Route: 048
     Dates: start: 20200629, end: 20200710

REACTIONS (4)
  - Inappropriate antidiuretic hormone secretion [Recovered/Resolved]
  - Hepatic function abnormal [Recovered/Resolved]
  - Hypokalaemia [Recovered/Resolved]
  - Hyponatraemia [Recovered/Resolved]

NARRATIVE: CASE EVENT DATE: 20200709
